FAERS Safety Report 22065527 (Version 3)
Quarter: 2023Q2

REPORT INFORMATION
  Report Type: Spontaneous
  Country: US (occurrence: US)
  Receive Date: 20230306
  Receipt Date: 20230620
  Transmission Date: 20230721
  Serious: No
  Sender: FDA-Public Use
  Company Number: US-PFIZER INC-PV202300039646

PATIENT
  Age: 45 Year
  Sex: Female

DRUGS (1)
  1. XELJANZ XR [Suspect]
     Active Substance: TOFACITINIB CITRATE
     Indication: Rheumatoid arthritis
     Dosage: 11 MG, DAILY
     Route: 048
     Dates: start: 20230223

REACTIONS (7)
  - Diarrhoea [Unknown]
  - Drug ineffective [Unknown]
  - Fatigue [Unknown]
  - Vomiting [Unknown]
  - Back pain [Unknown]
  - Frequent bowel movements [Unknown]
  - Arthralgia [Unknown]
